FAERS Safety Report 13589034 (Version 1)
Quarter: 2017Q2

REPORT INFORMATION
  Report Type: Spontaneous
  Country: TR (occurrence: TR)
  Receive Date: 20170529
  Receipt Date: 20170529
  Transmission Date: 20170830
  Serious: Yes (Other)
  Sender: FDA-Public Use
  Company Number: TR-IPCA LABORATORIES LIMITED-IPC-2017-TR-000577

PATIENT
  Age: 21 Year
  Sex: Male
  Weight: 82 kg

DRUGS (1)
  1. METOPROLOL. [Suspect]
     Active Substance: METOPROLOL
     Indication: PRODUCT USED FOR UNKNOWN INDICATION
     Dosage: 1000 MG, TWO HOURS PREVIOUSLY

REACTIONS (2)
  - Lactic acidosis [Recovered/Resolved]
  - Suicide attempt [Recovered/Resolved]
